FAERS Safety Report 22683258 (Version 3)
Quarter: 2025Q2

REPORT INFORMATION
  Report Type: Spontaneous
  Country: GB (occurrence: GB)
  Receive Date: 20230707
  Receipt Date: 20250522
  Transmission Date: 20250716
  Serious: Yes (Death, Other)
  Sender: MYLAN
  Company Number: GB-MYLANLABS-2023M1056584

PATIENT
  Age: 38 Year
  Sex: Male

DRUGS (1)
  1. CLOZARIL [Suspect]
     Active Substance: CLOZAPINE
     Indication: Schizophrenia

REACTIONS (4)
  - Death [Fatal]
  - Haemoglobin decreased [Not Recovered/Not Resolved]
  - Neutrophilia [Unknown]
  - Leukocytosis [Unknown]

NARRATIVE: CASE EVENT DATE: 20230109
